FAERS Safety Report 6199298-1 (Version None)
Quarter: 2009Q2

REPORT INFORMATION
  Report Type: 
  Country: None (occurrence: None)
  Receive Date: 20090522
  Receipt Date: 20090512
  Transmission Date: 20091009
  Serious: Yes (Death)
  Sender: FDA-Public Use
  Company Number: GB-PFIZER INC-2009199095

PATIENT
  Age: 91 Year

DRUGS (6)
  1. SOMATROPIN [Suspect]
     Indication: HYPOPITUITARISM
     Dosage: UNK
     Dates: start: 20010306, end: 20050202
  2. SPIRONOLACTONE [Concomitant]
     Dosage: 25 MG, UNK
  3. FRUSEMIDE [Concomitant]
     Dosage: 40 MG, UNK
  4. GLICLAZIDE [Concomitant]
     Dosage: 80 MG, UNK
  5. HYDROCORTISONE [Concomitant]
     Dosage: 10 MG, UNK
  6. LEVOTHYROXINE SODIUM [Concomitant]
     Dosage: 50 UG, UNK

REACTIONS (2)
  - DEEP VEIN THROMBOSIS [None]
  - PULMONARY EMBOLISM [None]
